FAERS Safety Report 6166051-4 (Version None)
Quarter: 2009Q2

REPORT INFORMATION
  Report Type: 
  Country: None (occurrence: None)
  Receive Date: 20090424
  Receipt Date: 20090415
  Transmission Date: 20091009
  Serious: Yes (Hospitalization, Other)
  Sender: FDA-Public Use
  Company Number: JP-JNJFOC-20090301999

PATIENT
  Sex: Male

DRUGS (8)
  1. CRAVIT [Suspect]
     Indication: ENTEROCOLITIS BACTERIAL
     Route: 048
  2. BIOFERMIN-R [Concomitant]
     Indication: ENTERITIS INFECTIOUS
     Route: 048
  3. CALONAL [Concomitant]
     Route: 065
  4. BUSCOPAN [Concomitant]
     Route: 065
  5. GASTER D [Concomitant]
     Route: 065
  6. GLUCOBAY [Concomitant]
     Indication: TYPE 2 DIABETES MELLITUS
     Route: 048
  7. LANTUS [Concomitant]
     Indication: TYPE 2 DIABETES MELLITUS
     Route: 058
  8. METILON [Concomitant]
     Route: 065

REACTIONS (3)
  - GASTRIC ULCER [None]
  - HELICOBACTER GASTRITIS [None]
  - LIVER DISORDER [None]
